FAERS Safety Report 4871598-4 (Version None)
Quarter: 2006Q1

REPORT INFORMATION
  Report Type: 
  Country: None (occurrence: None)
  Receive Date: 20060104
  Receipt Date: 20051228
  Transmission Date: 20060701
  Serious: Yes (Hospitalization)
  Sender: FDA-Public Use
  Company Number: FR-AVENTIS-200514403FR

PATIENT
  Age: 55 Year
  Sex: Female

DRUGS (2)
  1. PYOSTACINE [Suspect]
     Route: 048
     Dates: start: 20041111, end: 20050211
  2. RIFADIN [Suspect]
     Route: 048
     Dates: start: 20041111, end: 20050211

REACTIONS (4)
  - APHTHOUS STOMATITIS [None]
  - FACE OEDEMA [None]
  - RASH PRURITIC [None]
  - SKIN TEST POSITIVE [None]
